FAERS Safety Report 12971684 (Version 3)
Quarter: 2016Q4

REPORT INFORMATION
  Report Type: Spontaneous
  Country: GB (occurrence: GB)
  Receive Date: 20161123
  Receipt Date: 20161207
  Transmission Date: 20170207
  Serious: Yes (Other)
  Sender: FDA-Public Use
  Company Number: GB-009507513-1609GBR000514

PATIENT
  Age: 30 Year
  Sex: Female

DRUGS (1)
  1. NEXPLANON [Suspect]
     Active Substance: ETONOGESTREL
     Dosage: 1 DF, UNK, LEFT ARM
     Route: 059
     Dates: start: 20150411, end: 20161116

REACTIONS (6)
  - Emotional distress [Unknown]
  - Complication associated with device [Recovered/Resolved]
  - Device embolisation [Recovered/Resolved]
  - Cough [Unknown]
  - Menstruation irregular [Unknown]
  - General anaesthesia [Unknown]

NARRATIVE: CASE EVENT DATE: 20150411
